FAERS Safety Report 9913195 (Version 1)
Quarter: 2014Q1

REPORT INFORMATION
  Report Type: Spontaneous
  Country: CN (occurrence: None)
  Receive Date: 20140214
  Receipt Date: 20140214
  Transmission Date: 20141002
  Serious: Yes (Hospitalization)
  Sender: FDA-Public Use
  Company Number: DSU-2014-00229

PATIENT
  Age: 80 Year
  Sex: Female

DRUGS (3)
  1. OLMESARTAN [Suspect]
     Indication: HYPERTENSION
  2. URAPIDIL [Suspect]
     Indication: HYPERTENSION
  3. RECOMBINANT TISSUE PLASMINOGEN ACTIVATOR [Suspect]
     Indication: ISCHAEMIC STROKE

REACTIONS (1)
  - Angioedema [None]
